FAERS Safety Report 5901843-5 (Version None)
Quarter: 2008Q3

REPORT INFORMATION
  Report Type: 
  Country: None (occurrence: None)
  Receive Date: 20080925
  Receipt Date: 20080827
  Transmission Date: 20090109
  Serious: Yes (Death, Hospitalization, Other)
  Sender: FDA-Public Use
  Company Number: WAES0808USA05362

PATIENT
  Age: 79 Year
  Sex: Male
  Weight: 89.8122 kg

DRUGS (6)
  1. INDOMETHACIN [Suspect]
     Dosage: 25 MG, BID, PO
     Route: 048
     Dates: end: 20050616
  2. WARFARIN SODIUM [Concomitant]
  3. GLIPIZIDE [Concomitant]
  4. ASPIRIN [Concomitant]
  5. GLYBURIDE [Concomitant]
  6. WARFARIN SODIUM [Concomitant]

REACTIONS (26)
  - ANAEMIA [None]
  - ASTHENIA [None]
  - BREATH SOUNDS ABNORMAL [None]
  - CARDIAC FAILURE CHRONIC [None]
  - CARDIAC FAILURE CONGESTIVE [None]
  - CORONARY ARTERY DISEASE [None]
  - DECREASED APPETITE [None]
  - EXERCISE TOLERANCE DECREASED [None]
  - GAIT DISTURBANCE [None]
  - GENERALISED OEDEMA [None]
  - HAEMODIALYSIS [None]
  - HYPOKALAEMIA [None]
  - HYPOTHYROIDISM [None]
  - MALAISE [None]
  - MYOCARDIAL ISCHAEMIA [None]
  - OEDEMA PERIPHERAL [None]
  - PAIN IN EXTREMITY [None]
  - PERIPHERAL VASCULAR DISORDER [None]
  - RENAL FAILURE ACUTE [None]
  - RENAL FAILURE CHRONIC [None]
  - RHONCHI [None]
  - SOMNOLENCE [None]
  - TYPE 1 DIABETES MELLITUS [None]
  - ULCER [None]
  - VENOUS PRESSURE JUGULAR INCREASED [None]
  - WEIGHT INCREASED [None]
